FAERS Safety Report 5344331-X (Version None)
Quarter: 2007Q2

REPORT INFORMATION
  Report Type: 
  Country: None (occurrence: None)
  Receive Date: 20070604
  Receipt Date: 20070522
  Transmission Date: 20071010
  Serious: Yes (Hospitalization)
  Sender: FDA-Public Use
  Company Number: JP-SHR-JP-2007-018416

PATIENT
  Age: 58 Year
  Sex: Male

DRUGS (12)
  1. SOTALOL HYDROCHLORIDE [Suspect]
     Indication: VENTRICULAR TACHYCARDIA
     Dosage: 40 MG, 1X/DAY
     Route: 048
     Dates: start: 20061215, end: 20070114
  2. SOTALOL HYDROCHLORIDE [Suspect]
     Dosage: 80 MG, 1X/DAY
     Route: 048
     Dates: start: 20070115, end: 20070501
  3. AMIODARONE HCL [Concomitant]
     Indication: VENTRICULAR TACHYCARDIA
     Dates: start: 20050531, end: 20061103
  4. PREDNISOLONE [Concomitant]
     Dosage: 60 MG, 1X/DAY
     Dates: start: 20061103
  5. ASPIRIN [Concomitant]
     Dosage: 100 MG, 1X/DAY
     Route: 048
     Dates: start: 20021212
  6. ITOROL [Concomitant]
     Dosage: 20 MG, 2X/DAY
     Route: 048
     Dates: start: 20021212
  7. HERBESSOR R [Concomitant]
     Dosage: 100 MG, 2X/DAY
     Route: 048
     Dates: start: 20050414
  8. TICLOPIDINE HCL [Concomitant]
     Dosage: 100 MG, 2X/DAY
     Route: 048
     Dates: start: 20021212
  9. LIPITOR [Concomitant]
     Dosage: 10 MG, 1X/DAY
     Route: 048
     Dates: start: 20021212
  10. GASTER D [Concomitant]
     Dosage: 10 MG, 1X/DAY
     Route: 048
     Dates: start: 20070112
  11. LANIRAPID [Concomitant]
     Dosage: .1 MG, 1X/DAY
     Route: 048
     Dates: start: 20021212
  12. BLOPRESS [Concomitant]
     Dosage: 4 MG, 1X/DAY
     Route: 048
     Dates: start: 20050414

REACTIONS (1)
  - INTERSTITIAL LUNG DISEASE [None]
